FAERS Safety Report 16347394 (Version 1)
Quarter: 2019Q2

REPORT INFORMATION
  Report Type: Spontaneous
  Country: FR (occurrence: FR)
  Receive Date: 20190523
  Receipt Date: 20190523
  Transmission Date: 20190711
  Serious: Yes (Disabling, Other)
  Sender: FDA-Public Use
  Company Number: FR-SA-2019SA139485

PATIENT
  Age: 35 Year
  Sex: Female

DRUGS (1)
  1. AUBAGIO [Suspect]
     Active Substance: TERIFLUNOMIDE
     Indication: MULTIPLE SCLEROSIS
     Dosage: 14 UNK
     Dates: start: 201502, end: 20181006

REACTIONS (22)
  - Dizziness [Recovered/Resolved]
  - Hunger [Recovered/Resolved]
  - Neutrophil count increased [Recovered/Resolved]
  - Malaise [Recovered/Resolved]
  - Dysstasia [Recovered/Resolved]
  - Weight increased [Recovered/Resolved]
  - Haematochezia [Recovered/Resolved]
  - Loss of personal independence in daily activities [Unknown]
  - Confusional state [Unknown]
  - Sleep disorder [Recovered/Resolved]
  - Oral herpes [Recovered/Resolved]
  - Nausea [Recovered/Resolved]
  - Fatigue [Recovered/Resolved]
  - Feeling drunk [Recovered/Resolved]
  - Loss of consciousness [Unknown]
  - Cognitive disorder [Recovered/Resolved]
  - Migraine [Recovered/Resolved]
  - Hypertension [Recovered/Resolved]
  - Palpitations [Recovered/Resolved]
  - Anxiety [Recovered/Resolved]
  - Hyperhidrosis [Recovered/Resolved]
  - Diarrhoea [Recovered/Resolved]

NARRATIVE: CASE EVENT DATE: 201507
